FAERS Safety Report 5790995-6 (Version None)
Quarter: 2008Q2

REPORT INFORMATION
  Report Type: 
  Country: None (occurrence: None)
  Receive Date: 20080626
  Receipt Date: 20080226
  Transmission Date: 20081010
  Serious: No
  Sender: FDA-Public Use
  Company Number: A0711889A

PATIENT
  Age: 44 Year
  Sex: Male

DRUGS (2)
  1. ALLI [Suspect]
  2. DULCOLAX [Concomitant]

REACTIONS (3)
  - CONSTIPATION [None]
  - DIARRHOEA [None]
  - GASTRIC DISORDER [None]
